FAERS Safety Report 4340814-X (Version None)
Quarter: 2004Q2

REPORT INFORMATION
  Report Type: 
  Country: None (occurrence: None)
  Receive Date: 20040419
  Receipt Date: 20030624
  Transmission Date: 20050107
  Serious: No
  Sender: FDA-Public Use
  Company Number: US-GLAXOSMITHKLINE-A0413753A

PATIENT
  Age: 13 Year
  Sex: Female

DRUGS (1)
  1. ESKALITH [Suspect]
     Dosage: 450MG TWICE PER DAY
     Route: 048
     Dates: start: 20030401

REACTIONS (2)
  - CYANOSIS [None]
  - PERIPHERAL COLDNESS [None]
